FAERS Safety Report 9792713 (Version 2)
Quarter: 2014Q1

REPORT INFORMATION
  Report Type: Spontaneous
  Country: GB (occurrence: GB)
  Receive Date: 20140102
  Receipt Date: 20140102
  Transmission Date: 20141002
  Serious: Yes (Hospitalization)
  Sender: FDA-Public Use
  Company Number: PHFR2013GB004855

PATIENT
  Age: 26 Year
  Sex: Female
  Weight: 74 kg

DRUGS (5)
  1. CLOZARIL [Suspect]
     Indication: SCHIZOPHRENIA
     Dosage: UNK
     Route: 048
     Dates: start: 20110406
  2. CLOZARIL [Suspect]
     Indication: SCHIZOPHRENIA, PARANOID TYPE
     Dosage: 500 MG, DAILY
     Route: 048
     Dates: start: 20130913
  3. ARIPIPRAZOLE [Concomitant]
     Indication: SCHIZOPHRENIA, PARANOID TYPE
     Dosage: 10 MG, DAILY
     Route: 048
  4. SODIUM VALPROATE [Concomitant]
     Indication: MOOD SWINGS
     Dosage: 600 MG, DAILY
     Route: 048
  5. IVABRADINE [Concomitant]
     Indication: TACHYCARDIA
     Dosage: 10 MG, DAILY
     Route: 048

REACTIONS (4)
  - Hyporesponsive to stimuli [Unknown]
  - Posturing [Unknown]
  - Schizophrenia [Recovering/Resolving]
  - Antipsychotic drug level decreased [Unknown]
